FAERS Safety Report 5054706-4 (Version None)
Quarter: 2006Q2

REPORT INFORMATION
  Report Type: 
  Country: None (occurrence: None)
  Receive Date: 20060614
  Receipt Date: 20060206
  Transmission Date: 20061013
  Serious: No
  Sender: FDA-Public Use
  Company Number: US200602001432

PATIENT
  Age: 63 Year
  Sex: Male

DRUGS (3)
  1. CIALIS [Suspect]
     Indication: ERECTILE DYSFUNCTION
     Dosage: 10 MG
     Dates: start: 20051001
  2. MULTIVITAMINS (ASCORBIC ACID, ERGOCALCIFEROL, FOLIC ACID, NICOTINAMIDE [Concomitant]
  3. VITAMIN E [Concomitant]

REACTIONS (3)
  - SPONTANEOUS PENILE ERECTION [None]
  - TESTICULAR PAIN [None]
  - THERAPEUTIC RESPONSE DECREASED [None]
